FAERS Safety Report 17665602 (Version 1)
Quarter: 2020Q2

REPORT INFORMATION
  Report Type: Spontaneous
  Country: KR (occurrence: KR)
  Receive Date: 20200414
  Receipt Date: 20200414
  Transmission Date: 20200713
  Serious: Yes (Other)
  Sender: FDA-Public Use
  Company Number: KR-SUN PHARMACEUTICAL INDUSTRIES LTD-2020RR-244013

PATIENT
  Age: 62 Year
  Sex: Female

DRUGS (3)
  1. PALBOCICLIB [Suspect]
     Active Substance: PALBOCICLIB
     Dosage: 100 MILLIGRAM, UNK
     Route: 065
     Dates: start: 201811
  2. LETROZOLE. [Suspect]
     Active Substance: LETROZOLE
     Indication: BREAST CANCER METASTATIC
     Dosage: 2.5 MILLIGRAM, UNK
     Route: 065
     Dates: start: 201804
  3. PALBOCICLIB [Suspect]
     Active Substance: PALBOCICLIB
     Indication: BREAST CANCER METASTATIC
     Dosage: 150 MILLIGRAM, UNK
     Route: 065
     Dates: start: 201804

REACTIONS (6)
  - Neutropenia [Unknown]
  - Pyrexia [Unknown]
  - Contusion [Unknown]
  - Therapeutic product effect incomplete [Unknown]
  - Anaemia [Unknown]
  - Thrombocytopenia [Unknown]
